FAERS Safety Report 5094831-5 (Version None)
Quarter: 2006Q3

REPORT INFORMATION
  Report Type: 
  Country: None (occurrence: None)
  Receive Date: 20060830
  Receipt Date: 20060830
  Transmission Date: 20061208
  Serious: No
  Sender: FDA-Public Use
  Company Number: None

PATIENT
  Age: 40 Year
  Sex: Female

DRUGS (4)
  1. PLAQUENIL [Suspect]
     Indication: ARTHRITIS
     Dosage: 200 MG   TWICE DAILY   PO
     Route: 048
     Dates: start: 19900101, end: 20060101
  2. PLAQUENIL [Suspect]
     Indication: SYSTEMIC LUPUS ERYTHEMATOSUS
     Dosage: 200 MG   TWICE DAILY   PO
     Route: 048
     Dates: start: 19900101, end: 20060101
  3. PREDNISONE TAB [Concomitant]
  4. ACTONEL [Concomitant]

REACTIONS (2)
  - DRUG INEFFECTIVE [None]
  - THERAPEUTIC RESPONSE UNEXPECTED WITH DRUG SUBSTITUTION [None]
